FAERS Safety Report 11326480 (Version 1)
Quarter: 2015Q3

REPORT INFORMATION
  Report Type: Spontaneous
  Country: SV (occurrence: None)
  Receive Date: 20150729
  Receipt Date: 20150729
  Transmission Date: 20151125
  Serious: Yes (Hospitalization)
  Sender: FDA-Public Use
  Company Number: UCM201507-000486

PATIENT
  Age: 66 Year
  Sex: Male

DRUGS (7)
  1. DOXAZOSIN [Suspect]
     Active Substance: DOXAZOSIN\DOXAZOSIN MESYLATE
     Indication: SUICIDE ATTEMPT
     Route: 048
  2. TORASEMIDE [Suspect]
     Active Substance: TORSEMIDE
     Indication: SUICIDE ATTEMPT
     Route: 048
  3. BISOPROLOL FUMARATE. [Suspect]
     Active Substance: BISOPROLOL FUMARATE
     Indication: SUICIDE ATTEMPT
     Route: 048
  4. ACETYSALICLIC ACID [Suspect]
     Active Substance: ASPIRIN
     Indication: SUICIDE ATTEMPT
     Route: 048
  5. IBUPROFEN (IBUPROFEN) (IBUPROFEN) [Suspect]
     Active Substance: IBUPROFEN
     Indication: SUICIDE ATTEMPT
     Route: 048
  6. AMLODIPINE [Suspect]
     Active Substance: AMLODIPINE BESYLATE
     Indication: SUICIDE ATTEMPT
     Route: 048
  7. NIFEDIPINE (NIFEDIPINE) (NIFEDIPINE) [Suspect]
     Active Substance: NIFEDIPINE
     Indication: SUICIDE ATTEMPT
     Route: 048

REACTIONS (9)
  - Suicide attempt [None]
  - Intentional overdose [None]
  - Left ventricular dysfunction [None]
  - Sinus bradycardia [None]
  - Ejection fraction decreased [None]
  - Blood creatinine increased [None]
  - Metabolic acidosis [None]
  - Circulatory collapse [None]
  - Hypotension [None]
